FAERS Safety Report 8867578 (Version 1)
Quarter: 2012Q4

REPORT INFORMATION
  Report Type: 
  Country: US (occurrence: US)
  Receive Date: 20121025
  Receipt Date: 20121025
  Transmission Date: 20130627
  Serious: Yes (Other)
  Sender: FDA-Public Use
  Company Number: US-ROCHE-638184

PATIENT

DRUGS (4)
  1. TRASTUZUMAB [Suspect]
     Indication: BREAST CANCER METASTATIC
     Dosage: ADMINISTERED ON DAYS 1 AND 15 OF A 28-DAY CYCLE.
     Route: 042
  2. TRASTUZUMAB [Suspect]
     Dosage: ADMINISTERED ON DAYS 1 AND 15 OF A 28-DAY CYCLE.
     Route: 042
  3. LIPOSOMAL DOXORUBICIN [Suspect]
     Indication: BREAST CANCER METASTATIC
     Dosage: ADMINISTERED ON DAY 1 OF A 28-DAY CYCLE.
     Route: 042
  4. CARBOPLATIN [Suspect]
     Indication: BREAST CANCER METASTATIC
     Dosage: ADMINISTERED AS AUC = 5, ON DAY 1 OF A 28-DAY CYCLE.
     Route: 042

REACTIONS (8)
  - Neutropenia [Unknown]
  - Leukopenia [Unknown]
  - Thrombocytopenia [Unknown]
  - Fatigue [Unknown]
  - Anaemia [Unknown]
  - Nausea [Unknown]
  - Vomiting [Unknown]
  - Mucosal inflammation [Unknown]
